FAERS Safety Report 24698288 (Version 1)
Quarter: 2024Q4

REPORT INFORMATION
  Report Type: Spontaneous
  Country: CN (occurrence: CN)
  Receive Date: 20241204
  Receipt Date: 20241204
  Transmission Date: 20250114
  Serious: Yes (Hospitalization)
  Sender: DAIICHI
  Company Number: CN-DSJP-DS-2024-110028-CN

PATIENT
  Age: 73 Year
  Sex: Male

DRUGS (1)
  1. EDOXABAN [Suspect]
     Active Substance: EDOXABAN
     Indication: Anticoagulant therapy
     Dosage: 60 MG, QD
     Route: 048
     Dates: start: 20240908, end: 20241006

REACTIONS (6)
  - Gastrointestinal haemorrhage [Recovering/Resolving]
  - Gastrointestinal oedema [Unknown]
  - Intra-abdominal fluid collection [Unknown]
  - Scan adrenal gland abnormal [Unknown]
  - Oedema peripheral [Unknown]
  - Cholelithiasis [Unknown]

NARRATIVE: CASE EVENT DATE: 20241008
